FAERS Safety Report 10781545 (Version 1)
Quarter: 2015Q1

REPORT INFORMATION
  Report Type: Spontaneous
  Country: US (occurrence: US)
  Receive Date: 20150210
  Receipt Date: 20150210
  Transmission Date: 20150721
  Serious: No
  Sender: FDA-Public Use
  Company Number: US-BAUSCH-SYM-2013-14374

PATIENT
  Age: 70 Year
  Sex: Female
  Weight: 56.3 kg

DRUGS (1)
  1. XENAZINE [Suspect]
     Active Substance: TETRABENAZINE
     Indication: DYSKINESIA
     Dosage: 12.5 MG TWO TABLETS IN THE MORNING, ONE TABLET IN THE AFTERNOON, AND ONE TABLET IN THE EVENING.
     Route: 048
     Dates: start: 201312

REACTIONS (1)
  - Rash [Recovered/Resolved]

NARRATIVE: CASE EVENT DATE: 201312
